FAERS Safety Report 4964940-7 (Version None)
Quarter: 2006Q2

REPORT INFORMATION
  Report Type: 
  Country: None (occurrence: None)
  Receive Date: 20060403
  Receipt Date: 20060320
  Transmission Date: 20061013
  Serious: Yes (Other)
  Sender: FDA-Public Use
  Company Number: 8015791

PATIENT
  Age: 21 Year
  Sex: Male

DRUGS (1)
  1. METHYLPHENIDATE HCL [Suspect]
     Indication: ATTENTION DEFICIT/HYPERACTIVITY DISORDER
     Dosage: 50 MG/D PO
     Route: 048

REACTIONS (3)
  - CEREBROVASCULAR SPASM [None]
  - HYPERAEMIA [None]
  - TRANSIENT ISCHAEMIC ATTACK [None]
